FAERS Safety Report 4559982-X (Version None)
Quarter: 2005Q1

REPORT INFORMATION
  Report Type: 
  Country: None (occurrence: None)
  Receive Date: 20050120
  Receipt Date: 20050120
  Transmission Date: 20050727
  Serious: Yes (Hospitalization, Other)
  Sender: FDA-Public Use
  Company Number: None

PATIENT
  Age: 75 Year
  Sex: Male

DRUGS (2)
  1. SALSALATE [Suspect]
  2. ACE INHIBITOR [Suspect]

REACTIONS (1)
  - RENAL FAILURE ACUTE [None]
